FAERS Safety Report 6938698-6 (Version None)
Quarter: 2010Q3

REPORT INFORMATION
  Report Type: 
  Country: None (occurrence: None)
  Receive Date: 20100824
  Receipt Date: 20100811
  Transmission Date: 20110219
  Serious: Yes (Hospitalization, Other)
  Sender: FDA-Public Use
  Company Number: PHHY2010FI08871

PATIENT
  Sex: Female

DRUGS (4)
  1. GLEEVEC [Suspect]
     Indication: CHRONIC MYELOID LEUKAEMIA
     Dosage: 400 MG/ DAY
     Route: 048
     Dates: start: 20080123
  2. GLEEVEC [Suspect]
     Dosage: 600 MG/ DAY
     Route: 048
     Dates: start: 20090101
  3. POTASSIUM [Concomitant]
  4. IRON [Concomitant]

REACTIONS (2)
  - THYROID ADENOMA [None]
  - THYROID OPERATION [None]
